FAERS Safety Report 5787535-4 (Version None)
Quarter: 2008Q2

REPORT INFORMATION
  Report Type: 
  Country: None (occurrence: None)
  Receive Date: 20080625
  Receipt Date: 20080617
  Transmission Date: 20081010
  Serious: Yes (Other)
  Sender: FDA-Public Use
  Company Number: US-ROCHE-570559

PATIENT
  Age: 45 Year
  Sex: Female

DRUGS (2)
  1. BONIVA [Suspect]
     Indication: DRUG USE FOR UNKNOWN INDICATION
     Route: 065
     Dates: start: 20070601
  2. 1 CONCOMITANT DRUG [Concomitant]
     Dosage: DRUG: BLOOD PRESSURE MEDICINES

REACTIONS (1)
  - BONE SCAN ABNORMAL [None]
